FAERS Safety Report 5900766-5 (Version None)
Quarter: 2008Q3

REPORT INFORMATION
  Report Type: 
  Country: None (occurrence: None)
  Receive Date: 20080925
  Receipt Date: 20080911
  Transmission Date: 20090109
  Serious: Yes (Life-Threatening, Hospitalization)
  Sender: FDA-Public Use
  Company Number: 2008002380

PATIENT
  Age: 75 Year
  Sex: Male

DRUGS (10)
  1. ERLOTINIB (ERLOTINIB) (TABLET) (ERLOTINIB) [Suspect]
     Indication: LUNG ADENOCARCINOMA
     Dosage: (150 MG, QD), ORAL
     Route: 048
     Dates: start: 20080606, end: 20080815
  2. SUCRALFATE [Concomitant]
  3. OXYCONTIN [Concomitant]
  4. JUZENTAIHOTO (JUZENTAIHOTO) [Concomitant]
  5. AMITRIPTYLINE HCL [Concomitant]
  6. WARFARIN POTASSIUM (WARFARIN POTASSIUM) [Concomitant]
  7. ETODOLAC [Concomitant]
  8. MUCOSTA (REBAMIPIDE) [Concomitant]
  9. DAI-KENCHU-TO [Concomitant]
  10. LASIX [Concomitant]

REACTIONS (16)
  - BACTERIA SPUTUM IDENTIFIED [None]
  - CATHETER RELATED INFECTION [None]
  - DECUBITUS ULCER [None]
  - FOLLICULITIS [None]
  - HAEMOPHILUS INFECTION [None]
  - INTERSTITIAL LUNG DISEASE [None]
  - METASTASES TO PLEURA [None]
  - PERIPROCTITIS [None]
  - PNEUMONIA [None]
  - PNEUMONIA BACTERIAL [None]
  - PYELONEPHRITIS [None]
  - RESPIRATORY FAILURE [None]
  - SINUS TACHYCARDIA [None]
  - SKIN ULCER [None]
  - STAPHYLOCOCCAL INFECTION [None]
  - URINARY TRACT INFECTION [None]
